FAERS Safety Report 11852333 (Version 1)
Quarter: 2015Q4

REPORT INFORMATION
  Report Type: Spontaneous
  Country: GR (occurrence: GR)
  Receive Date: 20151218
  Receipt Date: 20151218
  Transmission Date: 20160305
  Serious: Yes (Hospitalization)
  Sender: FDA-Public Use
  Company Number: GR-WATSON-2015-27607

PATIENT
  Age: 33 Year
  Sex: Female
  Weight: 55 kg

DRUGS (4)
  1. PREDNISONE (UNKNOWN) [Suspect]
     Active Substance: PREDNISONE
     Indication: COLITIS ULCERATIVE
     Dosage: 40 MG, DAILY
     Route: 065
  2. PREDNISONE (UNKNOWN) [Suspect]
     Active Substance: PREDNISONE
     Dosage: 4 MG EVERY 10 DAYS
     Route: 065
  3. AZATHIOPRINE (UNKNOWN) [Suspect]
     Active Substance: AZATHIOPRINE
     Indication: COLITIS ULCERATIVE
     Dosage: 100 MG, DAILY
     Route: 065
  4. PREDNISONE (UNKNOWN) [Suspect]
     Active Substance: PREDNISONE
     Dosage: 10 MG, DAILY
     Route: 065

REACTIONS (1)
  - Cerebral toxoplasmosis [Recovered/Resolved]
